FAERS Safety Report 8949384 (Version 1)
Quarter: 2012Q4

REPORT INFORMATION
  Report Type: 
  Country: US (occurrence: US)
  Receive Date: 20121206
  Receipt Date: 20121206
  Transmission Date: 20130627
  Serious: Yes (Hospitalization, Other)
  Sender: FDA-Public Use
  Company Number: US-ROXANE LABORATORIES, INC.-2012-RO-02502RO

PATIENT
  Age: 62 Year
  Sex: Male

DRUGS (3)
  1. BUPRENORPHINE HYDROCHLORIDE [Suspect]
     Indication: DRUG DEPENDENCE
     Dosage: 4 mg
  2. BUPRENORPHINE HYDROCHLORIDE [Suspect]
  3. METHADONE [Suspect]
     Indication: DRUG DEPENDENCE
     Dosage: 165 mg

REACTIONS (2)
  - Drug withdrawal syndrome [Recovered/Resolved]
  - Electrocardiogram QT prolonged [Unknown]
